FAERS Safety Report 13208023 (Version 1)
Quarter: 2017Q1

REPORT INFORMATION
  Report Type: Report from Study
  Country: DE (occurrence: DE)
  Receive Date: 20170209
  Receipt Date: 20170209
  Transmission Date: 20170428
  Serious: Yes (Death, Hospitalization)
  Sender: FDA-Public Use
  Company Number: DE-SA-2017SA018649

PATIENT
  Age: 78 Year
  Sex: Male

DRUGS (2)
  1. CLOFARABINE [Suspect]
     Active Substance: CLOFARABINE
     Indication: ACUTE MYELOID LEUKAEMIA
     Route: 040
     Dates: start: 20110915, end: 20110919
  2. ARA-C [Suspect]
     Active Substance: CYTARABINE
     Indication: ACUTE MYELOID LEUKAEMIA
     Route: 058
     Dates: start: 20110915, end: 20110928

REACTIONS (4)
  - Disorientation [Fatal]
  - Respiratory failure [Fatal]
  - Nephropathy toxic [Fatal]
  - Sepsis [Fatal]

NARRATIVE: CASE EVENT DATE: 201110
